FAERS Safety Report 4807817-X (Version None)
Quarter: 2005Q4

REPORT INFORMATION
  Report Type: 
  Country: None (occurrence: None)
  Receive Date: 20051021
  Receipt Date: 20051006
  Transmission Date: 20060501
  Serious: No
  Sender: FDA-Public Use
  Company Number: TPA2005A01191

PATIENT
  Sex: Male

DRUGS (3)
  1. ACTOS [Suspect]
     Dosage: 45 MG, 2 IN 1 D, PER ORAL
     Route: 048
  2. GLUCOTROL XL [Concomitant]
  3. GLUCOPHAGE [Concomitant]

REACTIONS (1)
  - INCORRECT DOSE ADMINISTERED [None]
